FAERS Safety Report 18065466 (Version 1)
Quarter: 2020Q3

REPORT INFORMATION
  Report Type: Spontaneous
  Country: US (occurrence: US)
  Receive Date: 20200724
  Receipt Date: 20200724
  Transmission Date: 20201103
  Serious: Yes (Hospitalization)
  Sender: FDA-Public Use
  Company Number: None

PATIENT
  Age: 62 Year
  Sex: Male

DRUGS (1)
  1. LOSARTAN (LOSARTAN 25MG TAB) [Suspect]
     Active Substance: LOSARTAN
     Indication: HYPERTENSION
     Dosage: ?          OTHER FREQUENCY:BEDTIME;?

REACTIONS (6)
  - Asthenia [None]
  - Electrocardiogram abnormal [None]
  - Dizziness [None]
  - Hyperkalaemia [None]
  - Dialysis [None]
  - Fatigue [None]

NARRATIVE: CASE EVENT DATE: 20200714
